FAERS Safety Report 7364838-3 (Version None)
Quarter: 2011Q1

REPORT INFORMATION
  Report Type: 
  Country: None (occurrence: None)
  Receive Date: 20110321
  Receipt Date: 20110308
  Transmission Date: 20110831
  Serious: Yes (Hospitalization)
  Sender: FDA-Public Use
  Company Number: CA-GENENTECH-267947

PATIENT
  Sex: Male
  Weight: 66 kg

DRUGS (12)
  1. ADVAIR DISKUS 100/50 [Concomitant]
     Indication: PRODUCT USED FOR UNKNOWN INDICATION
     Dosage: UNK
     Route: 065
     Dates: end: 20080101
  2. OMALIZUMAB [Suspect]
     Indication: ASTHMA
     Dosage: 375 MG, Q2W
     Route: 058
     Dates: start: 20080721
  3. PREDNISONE [Concomitant]
     Indication: PRODUCT USED FOR UNKNOWN INDICATION
     Dosage: UNK
     Route: 065
  4. OMALIZUMAB [Suspect]
     Dosage: 375 MG, Q2W
     Route: 058
     Dates: start: 20091130
  5. OMALIZUMAB [Suspect]
     Dosage: 375 MG, Q2W
     Route: 058
     Dates: start: 20100308
  6. OMALIZUMAB [Suspect]
     Dosage: 375 MG, Q2W
     Route: 058
     Dates: start: 20100405
  7. OMALIZUMAB [Suspect]
     Dosage: 375 MG, Q2W
     Route: 065
     Dates: start: 20091019
  8. OMALIZUMAB [Suspect]
     Dosage: 375 MG, Q2W
     Route: 058
     Dates: start: 20100208
  9. TOBRAMYCIN [Concomitant]
     Indication: PRODUCT USED FOR UNKNOWN INDICATION
     Dosage: UNK
     Route: 065
     Dates: end: 20080101
  10. OMALIZUMAB [Suspect]
     Dosage: UNK
     Route: 065
  11. NOVOTRIMEL [Concomitant]
     Indication: PRODUCT USED FOR UNKNOWN INDICATION
     Dosage: UNK
     Route: 065
     Dates: end: 20080101
  12. PULMOZYME [Concomitant]
     Indication: PRODUCT USED FOR UNKNOWN INDICATION

REACTIONS (11)
  - RESPIRATORY TRACT INFECTION [None]
  - PULMONARY FUNCTION TEST ABNORMAL [None]
  - ASPERGILLOSIS [None]
  - FEELING COLD [None]
  - BLOOD PRESSURE ABNORMAL [None]
  - SPIROMETRY [None]
  - OROPHARYNGEAL PAIN [None]
  - HEART RATE INCREASED [None]
  - NASAL CONGESTION [None]
  - THROAT IRRITATION [None]
  - DYSPHONIA [None]
